FAERS Safety Report 8327470-0 (Version None)
Quarter: 2012Q2

REPORT INFORMATION
  Report Type: 
  Country: None (occurrence: None)
  Receive Date: 20120502
  Receipt Date: 20120426
  Transmission Date: 20120825
  Serious: Yes (Other)
  Sender: FDA-Public Use
  Company Number: US-BAYER-2012-041882

PATIENT
  Age: 44 Year
  Sex: Female

DRUGS (4)
  1. YASMIN [Suspect]
     Dosage: UNK
     Dates: start: 20080401, end: 20091001
  2. DROSPIRENONE AND ETHINYL ESTRADIOL [Suspect]
     Dosage: UNK
     Dates: start: 20100701, end: 20110701
  3. YASMIN [Suspect]
     Dosage: UNK
     Dates: start: 20100701, end: 20110701
  4. DROSPIRENONE AND ETHINYL ESTRADIOL [Suspect]
     Dosage: UNK
     Dates: start: 20080401, end: 20091001

REACTIONS (3)
  - PAIN [None]
  - THROMBOSIS [None]
  - INJURY [None]
